FAERS Safety Report 8819212 (Version 13)
Quarter: 2013Q4

REPORT INFORMATION
  Report Type: Spontaneous
  Country: US (occurrence: US)
  Receive Date: 20121001
  Receipt Date: 20131203
  Transmission Date: 20140711
  Serious: No
  Sender: FDA-Public Use
  Company Number: US-PFIZER INC-2012238891

PATIENT
  Age: 51 Year
  Sex: Female
  Weight: 54.42 kg

DRUGS (10)
  1. SUTENT [Suspect]
     Indication: PANCREATIC NEUROENDOCRINE TUMOUR
     Dosage: 37.5 MG (25 MG + 12.5 MG), 1X/DAY
     Route: 048
     Dates: start: 20120911
  2. OMNICEF [Suspect]
     Indication: UPPER RESPIRATORY TRACT INFECTION
     Dosage: 300 MG, 2X/DAY
     Route: 048
     Dates: start: 20120921
  3. PAXIL [Concomitant]
     Dosage: AS NEEDED
  4. SUDAFED [Concomitant]
     Indication: NASAL DECONGESTION THERAPY
     Dosage: AS NEEDED
  5. MUCINEX [Concomitant]
     Dosage: UNK, AS NEEDED
  6. TUMERIC [Concomitant]
     Dosage: DAILY, AS NEEDED
  7. TYLENOL [Concomitant]
     Dosage: UNK
  8. CLARITIN [Concomitant]
     Dosage: UNK
  9. RESVERATROL [Concomitant]
     Dosage: AS NEEDED
  10. CALCIUM W/MAGNESIUM [Concomitant]
     Indication: SUPPLEMENTATION THERAPY
     Dosage: AS NEEDED

REACTIONS (41)
  - Upper respiratory tract infection [Unknown]
  - Headache [Unknown]
  - Insomnia [Unknown]
  - Drug dose omission [Unknown]
  - Hepatic enzyme increased [Recovered/Resolved]
  - Nausea [Not Recovered/Not Resolved]
  - Sensation of foreign body [Not Recovered/Not Resolved]
  - Feeling abnormal [Not Recovered/Not Resolved]
  - Blood pressure increased [Unknown]
  - Acne [Unknown]
  - Glossitis [Not Recovered/Not Resolved]
  - Dry mouth [Not Recovered/Not Resolved]
  - Dry skin [Unknown]
  - Dysgeusia [Unknown]
  - Muscle spasms [Unknown]
  - Alopecia [Unknown]
  - Eyelash discolouration [Unknown]
  - Hair colour changes [Unknown]
  - Gastric disorder [Not Recovered/Not Resolved]
  - Glossodynia [Unknown]
  - Platelet count decreased [Recovered/Resolved]
  - Mucosal inflammation [Not Recovered/Not Resolved]
  - Arthralgia [Unknown]
  - Diarrhoea [Recovered/Resolved]
  - Flatulence [Unknown]
  - Blister [Unknown]
  - Hyperkeratosis [Unknown]
  - Erythema [Unknown]
  - Musculoskeletal stiffness [Unknown]
  - Menorrhagia [Not Recovered/Not Resolved]
  - Palmar-plantar erythrodysaesthesia syndrome [Recovered/Resolved]
  - Diarrhoea [Recovered/Resolved]
  - Blood thyroid stimulating hormone increased [Recovered/Resolved]
  - Tri-iodothyronine free abnormal [Recovered/Resolved]
  - Thyroxine free abnormal [Recovered/Resolved]
  - Migraine with aura [Recovered/Resolved]
  - Photopsia [Unknown]
  - Musculoskeletal pain [Not Recovered/Not Resolved]
  - Appetite disorder [Recovering/Resolving]
  - Disease progression [Unknown]
  - Pancreatic neuroendocrine tumour [Unknown]
